FAERS Safety Report 23714881 (Version 1)
Quarter: 2024Q2

REPORT INFORMATION
  Report Type: Spontaneous
  Country: NL (occurrence: NL)
  Receive Date: 20240406
  Receipt Date: 20240406
  Transmission Date: 20240716
  Serious: Yes (Hospitalization)
  Sender: FDA-Public Use
  Company Number: None

PATIENT
  Age: 84 Year
  Sex: Female
  Weight: 53 kg

DRUGS (9)
  1. AMLODIPINE [Suspect]
     Active Substance: AMLODIPINE BESYLATE
     Indication: Disease risk factor
     Dosage: STRENGTH: 5 MG, 1 X PER DAY 1 PIECE
     Dates: start: 20220523, end: 20230105
  2. CODEINE [Concomitant]
     Active Substance: CODEINE
     Dosage: STRENGTH: 10 MG
  3. DESLORATADINE [Concomitant]
     Active Substance: DESLORATADINE
     Dosage: STRENGTH: 5 MG
  4. SERETIDE [Concomitant]
     Active Substance: FLUTICASONE PROPIONATE\SALMETEROL XINAFOATE
     Dosage: STRENGTH: 50/250 MCG/DOSE
  5. PANTOPRAZOLE [Concomitant]
     Active Substance: PANTOPRAZOLE
     Dosage: STRENGTH: 40 MG
  6. CALCIUM CARBONATE\CHOLECALCIFEROL [Concomitant]
     Active Substance: CALCIUM CARBONATE\CHOLECALCIFEROL
     Dosage: STRENGTH: 1.25G/800IU, 500/800IE
  7. CARBOMER [Concomitant]
     Active Substance: CARBOMER
     Dosage: STRENGTH:: 2 MG/G TUBE 10 G
  8. CLOPIDOGREL [Concomitant]
     Active Substance: CLOPIDOGREL BISULFATE
     Dosage: STRENGTH: 75 MG
  9. ARTHROTEC [Concomitant]
     Active Substance: DICLOFENAC SODIUM\MISOPROSTOL
     Dosage: STRENGTH: 50 MG /200 MCG

REACTIONS (3)
  - Aphasia [Unknown]
  - Gait disturbance [Unknown]
  - Cognitive disorder [Unknown]
